FAERS Safety Report 4632887-1 (Version None)
Quarter: 2005Q2

REPORT INFORMATION
  Report Type: 
  Country: None (occurrence: None)
  Receive Date: 20050411
  Receipt Date: 20050411
  Transmission Date: 20051028
  Serious: Yes (Other)
  Sender: FDA-Public Use
  Company Number: None

PATIENT

DRUGS (3)
  1. ZEVALIN [Suspect]
     Indication: LYMPHOMA
     Dosage: 32 MCI  IV , ONCE
     Route: 042
  2. ZOLOFT [Concomitant]
  3. LORATADINE [Concomitant]

REACTIONS (5)
  - GRANULOCYTES ABNORMAL [None]
  - HAEMOGLOBIN ABNORMAL [None]
  - NEUTROPHIL COUNT ABNORMAL [None]
  - PLATELET COUNT ABNORMAL [None]
  - WHITE BLOOD CELL COUNT ABNORMAL [None]
